FAERS Safety Report 7353565-4 (Version None)
Quarter: 2011Q1

REPORT INFORMATION
  Report Type: 
  Country: None (occurrence: None)
  Receive Date: 20110310
  Receipt Date: 20110310
  Transmission Date: 20110831
  Serious: Yes (Death)
  Sender: FDA-Public Use
  Company Number: None

PATIENT
  Sex: Male

DRUGS (10)
  1. DIOVAN [Concomitant]
  2. ISOSORBIDE DINITRATE [Concomitant]
  3. PRILOSEC [Concomitant]
  4. SIMVASTATIN [Concomitant]
  5. RANIBIZUMAB [Suspect]
     Dosage: 0.5MG MONTHLY INTRAOCULAR INJECTION, LEFT EYE
     Route: 047
     Dates: start: 20100309, end: 20101208
  6. RANIBIZUMAB [Suspect]
  7. RANIBIZUMAB [Suspect]
  8. AMBIEN [Concomitant]
  9. TOPROL-XL [Concomitant]
  10. REQUIP [Concomitant]

REACTIONS (5)
  - HYPERTENSION [None]
  - ATRIAL FIBRILLATION [None]
  - HYPERLIPIDAEMIA [None]
  - CORONARY ARTERY DISSECTION [None]
  - RENAL FAILURE [None]
